FAERS Safety Report 11470140 (Version 2)
Quarter: 2015Q3

REPORT INFORMATION
  Report Type: Spontaneous
  Country: US (occurrence: US)
  Receive Date: 20150903
  Receipt Date: 20150903
  Transmission Date: 20151125
  Serious: No
  Sender: FDA-Public Use
  Company Number: US-ELI_LILLY_AND_COMPANY-US201111004574

PATIENT
  Age: 68 Year
  Sex: Male

DRUGS (4)
  1. CYMBALTA [Suspect]
     Active Substance: DULOXETINE HYDROCHLORIDE
     Indication: BACK PAIN
     Dosage: 60 MG, QD
     Dates: start: 201105
  2. METHADONE [Concomitant]
     Active Substance: METHADONE HYDROCHLORIDE
  3. ANTIHYPERTENSIVES [Concomitant]
     Active Substance: UNSPECIFIED INGREDIENT
  4. SEROTONIN [Concomitant]
     Active Substance: SEROTONIN

REACTIONS (6)
  - Malabsorption [Unknown]
  - Somnolence [Unknown]
  - Confusional state [Unknown]
  - Nausea [Unknown]
  - Hypersomnia [Unknown]
  - Depression [Unknown]

NARRATIVE: CASE EVENT DATE: 201105
